FAERS Safety Report 4357916-4 (Version None)
Quarter: 2004Q2

REPORT INFORMATION
  Report Type: 
  Country: None (occurrence: None)
  Receive Date: 20040510
  Receipt Date: 20040426
  Transmission Date: 20050107
  Serious: Yes (Hospitalization)
  Sender: FDA-Public Use
  Company Number: 2004IC000085

PATIENT
  Age: 72 Year
  Sex: Male
  Weight: 80 kg

DRUGS (4)
  1. MESTINON [Suspect]
     Indication: GENERAL SYMPTOM
     Dosage: 60 MG; TWICE A DAY; ORAL
     Route: 048
  2. MOSCONTIN (MORPHINE SULFATE) [Suspect]
     Indication: GENERAL SYMPTOM
     Dosage: 60 MG; ORAL
     Route: 048
  3. DISTILBENE (DIETHYLSTILBESTROL) [Suspect]
     Indication: PROSTATE CANCER
     Dosage: 1 MG; ORAL
     Route: 048
  4. LASIX [Suspect]
     Indication: OEDEMA
     Dosage: 20 MG; ORAL
     Route: 048

REACTIONS (3)
  - DECUBITUS ULCER [None]
  - PEMPHIGUS [None]
  - SKIN INFLAMMATION [None]
